FAERS Safety Report 11098922 (Version 12)
Quarter: 2015Q3

REPORT INFORMATION
  Report Type: Spontaneous
  Country: DE (occurrence: DE)
  Receive Date: 20150508
  Receipt Date: 20150818
  Transmission Date: 20151125
  Serious: Yes (Hospitalization)
  Sender: FDA-Public Use
  Company Number: DE-AMGEN-DEUSP2015044565

PATIENT
  Sex: Male

DRUGS (19)
  1. DOXORUBICINE [Suspect]
     Active Substance: DOXORUBICIN
     Indication: B-CELL LYMPHOMA
     Dosage: 98 MG, 1 IN 2 WK
     Route: 042
     Dates: start: 20150126, end: 20150409
  2. FILGRASTIM [Suspect]
     Active Substance: FILGRASTIM
     Indication: B-CELL LYMPHOMA
     Dosage: 6 MG, (1 IN 2 WK)
     Route: 058
     Dates: start: 20150129, end: 20150412
  3. RITUXIMAB [Suspect]
     Active Substance: RITUXIMAB
     Indication: B-CELL LYMPHOMA
     Dosage: 1 IN 2 WK
     Route: 042
     Dates: start: 20150122, end: 20150409
  4. CYCLOPHOSPHAMIDE. [Suspect]
     Active Substance: CYCLOPHOSPHAMIDE
     Indication: B-CELL LYMPHOMA
     Dosage: 1480 MG, 1 IN 2 WK
     Route: 042
     Dates: start: 20150126, end: 20150409
  5. METOCLOPRAMIDE. [Concomitant]
     Active Substance: METOCLOPRAMIDE
     Dosage: 30 MG, DAILY
     Route: 048
     Dates: start: 20150623
  6. NATRIUMPICOSULFAT [Concomitant]
     Dosage: 15 GTT, AS NECESSARY
     Route: 048
  7. KALIUMCHLORIDE [Concomitant]
     Indication: ELECTROLYTE IMBALANCE
     Dosage: UNK
     Dates: start: 20150210, end: 20150413
  8. METOCLOPRAMIDE. [Concomitant]
     Active Substance: METOCLOPRAMIDE
     Indication: NAUSEA
     Dosage: 10 MG, PRN
     Route: 048
     Dates: start: 20150210
  9. MIRTAZAPINE. [Concomitant]
     Active Substance: MIRTAZAPINE
     Indication: SLEEP DISORDER
     Dosage: 15 MG, 1 IN 1 D
     Route: 048
     Dates: start: 20150210
  10. SULFAMETHOXAZOLE-TRIMETHOPRIM (SMZ) [Concomitant]
     Active Substance: SULFAMETHOXAZOLE\TRIMETHOPRIM
     Indication: PROPHYLAXIS
     Dosage: MON, WED, FRI
     Route: 048
     Dates: start: 20150120
  11. URSODEOXYCHOLIC ACID [Concomitant]
     Active Substance: URSODIOL
     Dosage: 250 MG, 1 IN 1 D
     Route: 048
     Dates: start: 200202
  12. LEVOTHYROXINE SODIUM. [Concomitant]
     Active Substance: LEVOTHYROXINE SODIUM
     Indication: HYPOTHYROIDISM
     Dosage: 50 MG, 1 IN 1 D
     Route: 048
  13. SODIUM HYDROGEN CARBONATE [Concomitant]
     Active Substance: SODIUM BICARBONATE
     Dosage: 1 BAG DAILY
     Route: 048
     Dates: start: 20150623
  14. VINCRISTINE [Suspect]
     Active Substance: VINCRISTINE
     Indication: B-CELL LYMPHOMA
     Dosage: 3.92 MG, 1 IN 2 WK
     Route: 042
     Dates: start: 20150127, end: 20150409
  15. PANTOPRAZOLE SODIUM. [Concomitant]
     Active Substance: PANTOPRAZOLE SODIUM
     Indication: PROPHYLAXIS AGAINST GASTROINTESTINAL ULCER
     Dosage: 40 MG, (1 IN 1 D)
     Route: 048
     Dates: start: 20150120
  16. RAMIPRIL. [Concomitant]
     Active Substance: RAMIPRIL
     Indication: HYPERTENSION
     Dosage: 2.5 MG, 1 IN 1 D
     Route: 048
  17. SODIUM CHLORIDE. [Concomitant]
     Active Substance: SODIUM CHLORIDE
     Dosage: 1 BAG DAILY
     Route: 048
     Dates: start: 20150623
  18. PREDNISONE. [Suspect]
     Active Substance: PREDNISONE
     Indication: B-CELL LYMPHOMA
     Dosage: 500 MG, (1 IN 2 WK)
     Route: 048
     Dates: start: 20150122, end: 20150413
  19. POTASSIUM CHLORIDE. [Concomitant]
     Active Substance: POTASSIUM CHLORIDE
     Dosage: 1 BAG DAILY
     Route: 048
     Dates: start: 20150623

REACTIONS (8)
  - Abdominal pain upper [Unknown]
  - Colitis [Recovered/Resolved with Sequelae]
  - Diabetic gastroparesis [Recovered/Resolved]
  - General physical health deterioration [Recovered/Resolved with Sequelae]
  - Subileus [Recovered/Resolved]
  - Enteritis [Recovered/Resolved with Sequelae]
  - Abdominal pain upper [Recovered/Resolved]
  - Vomiting [Recovered/Resolved]

NARRATIVE: CASE EVENT DATE: 20150423
